FAERS Safety Report 23353743 (Version 1)
Quarter: 2024Q1

REPORT INFORMATION
  Report Type: Spontaneous
  Country: US (occurrence: US)
  Receive Date: 20240101
  Receipt Date: 20240101
  Transmission Date: 20240410
  Serious: No
  Sender: FDA-Public Use
  Company Number: US-PURDUE PHARMA-USA-2023-0305087

PATIENT
  Sex: Female

DRUGS (5)
  1. BUTRANS [Suspect]
     Active Substance: BUPRENORPHINE
     Indication: Pain
     Dosage: 10 MICROGRAM, WEEKLY (ONCE WEEKLY DOSE FOR 1 YEAR)
     Route: 062
     Dates: start: 20230929
  2. BUTRANS [Suspect]
     Active Substance: BUPRENORPHINE
     Indication: Pain in extremity
     Dosage: 15 MICROGRAM
     Route: 062
  3. BUTRANS [Suspect]
     Active Substance: BUPRENORPHINE
     Indication: Pelvic misalignment
     Dosage: 5 MICROGRAM
     Route: 062
  4. BUTRANS [Suspect]
     Active Substance: BUPRENORPHINE
     Indication: Hypermobility syndrome
     Dosage: 10 MICROGRAM
     Route: 062
  5. BOTOX [Concomitant]
     Active Substance: ONABOTULINUMTOXINA
     Indication: Pain
     Dosage: UNKNOWN
     Route: 065

REACTIONS (3)
  - Vomiting [Unknown]
  - Diarrhoea [Unknown]
  - Abdominal discomfort [Unknown]
